FAERS Safety Report 25220897 (Version 1)
Quarter: 2025Q2

REPORT INFORMATION
  Report Type: Spontaneous
  Country: US (occurrence: None)
  Receive Date: 20250419
  Receipt Date: 20250419
  Transmission Date: 20250716
  Serious: No
  Sender: FDA-CTU
  Company Number: None

PATIENT
  Age: 55 Year
  Sex: Female
  Weight: 53.3 kg

DRUGS (3)
  1. CYTARABINE [Suspect]
     Active Substance: CYTARABINE
     Dates: end: 20250124
  2. SPRYCEL [Suspect]
     Active Substance: DASATINIB
     Dates: end: 20250124
  3. METHOTREXATE [Suspect]
     Active Substance: METHOTREXATE
     Dates: end: 20250123

REACTIONS (6)
  - Hypokalaemia [None]
  - Infusion related reaction [None]
  - Abdominal pain [None]
  - Hypoaesthesia oral [None]
  - Chills [None]
  - Hypertension [None]

NARRATIVE: CASE EVENT DATE: 20250124
